FAERS Safety Report 6868891-2 (Version None)
Quarter: 2010Q3

REPORT INFORMATION
  Report Type: 
  Country: None (occurrence: None)
  Receive Date: 20100721
  Receipt Date: 20100721
  Transmission Date: 20110219
  Serious: Yes (Life-Threatening, Hospitalization, Disabling)
  Sender: FDA-Public Use
  Company Number: None

PATIENT
  Age: 35 Year
  Sex: Female
  Weight: 43.9989 kg

DRUGS (2)
  1. LANTUS [Suspect]
     Dosage: 14 UNITS EACH NIGHT ID
     Dates: start: 20100627, end: 20100630
  2. LANTUS [Suspect]
     Dosage: 14 UNITS EACH NIGHT ID
     Dates: start: 20100703, end: 20100703

REACTIONS (2)
  - DIABETIC KETOACIDOSIS [None]
  - DRUG INEFFECTIVE [None]
